FAERS Safety Report 6546777-0 (Version None)
Quarter: 2010Q1

REPORT INFORMATION
  Report Type: 
  Country: None (occurrence: None)
  Receive Date: 20100122
  Receipt Date: 20100113
  Transmission Date: 20100710
  Serious: Yes (Hospitalization)
  Sender: FDA-Public Use
  Company Number: US-TEVA-189172USA

PATIENT
  Age: 28 Year
  Sex: Female
  Weight: 80.358 kg

DRUGS (1)
  1. PLAN B [Suspect]
     Indication: POST COITAL CONTRACEPTION
     Route: 048
     Dates: start: 20090308, end: 20090308

REACTIONS (5)
  - CERVIX DISORDER [None]
  - DRUG INEFFECTIVE [None]
  - PREGNANCY AFTER POST COITAL CONTRACEPTION [None]
  - PREMATURE LABOUR [None]
  - VAGINAL HAEMORRHAGE [None]
